FAERS Safety Report 8143525-8 (Version None)
Quarter: 2012Q1

REPORT INFORMATION
  Report Type: 
  Country: None (occurrence: None)
  Receive Date: 20120217
  Receipt Date: 20120207
  Transmission Date: 20120608
  Serious: Yes (Other)
  Sender: FDA-Public Use
  Company Number: US-PERRIGO-12US001080

PATIENT
  Sex: Female

DRUGS (1)
  1. PERMETHRIN [Suspect]
     Indication: ACARODERMATITIS
     Dosage: DAILY
     Route: 061
     Dates: start: 20120101

REACTIONS (3)
  - SWELLING FACE [None]
  - CAROTIDYNIA [None]
  - OVERDOSE [None]
